FAERS Safety Report 5503675-9 (Version None)
Quarter: 2007Q4

REPORT INFORMATION
  Report Type: 
  Country: None (occurrence: None)
  Receive Date: 20071101
  Receipt Date: 20071026
  Transmission Date: 20080405
  Serious: Yes (Other)
  Sender: FDA-Public Use
  Company Number: PHEH2007US14094

PATIENT
  Sex: Female

DRUGS (1)
  1. ZOMETA [Suspect]
     Indication: BONE PAIN

REACTIONS (4)
  - BONE PAIN [None]
  - CAST APPLICATION [None]
  - FOOT FRACTURE [None]
  - IMPAIRED HEALING [None]
